FAERS Safety Report 4362375-1 (Version None)
Quarter: 2004Q2

REPORT INFORMATION
  Report Type: 
  Country: None (occurrence: None)
  Receive Date: 20040521
  Receipt Date: 20020516
  Transmission Date: 20050107
  Serious: Yes (Hospitalization)
  Sender: FDA-Public Use
  Company Number: US-MERCK-0205USA02074

PATIENT
  Age: 55 Year
  Sex: Male
  Weight: 102 kg

DRUGS (8)
  1. WELLBUTRIN [Concomitant]
     Route: 065
     Dates: start: 19960601, end: 20040301
  2. ENBREL [Concomitant]
     Route: 065
  3. GLUCOSAMINE [Concomitant]
     Route: 065
  4. METHOTREXATE [Concomitant]
     Route: 065
     Dates: start: 19960301, end: 20040301
  5. VIOXX [Suspect]
     Indication: ARTHRITIS
     Route: 048
     Dates: start: 20000301, end: 20001101
  6. VIOXX [Suspect]
     Route: 048
     Dates: start: 20001101
  7. VIOXX [Suspect]
     Indication: RHEUMATOID ARTHRITIS
     Route: 048
     Dates: start: 20000301, end: 20001101
  8. VIOXX [Suspect]
     Route: 048
     Dates: start: 20001101

REACTIONS (20)
  - ANGINA UNSTABLE [None]
  - BONE CYST [None]
  - BRONCHITIS [None]
  - CHONDROPATHY [None]
  - CORONARY ARTERY STENOSIS [None]
  - DILATATION ATRIAL [None]
  - EMOTIONAL DISTRESS [None]
  - HYPERLIPIDAEMIA [None]
  - INITIAL INSOMNIA [None]
  - INJURY [None]
  - MYOCARDIAL INFARCTION [None]
  - NOCTURIA [None]
  - OVERDOSE [None]
  - PERICARDITIS [None]
  - PLEURISY [None]
  - PLEURITIC PAIN [None]
  - RHEUMATOID ARTHRITIS [None]
  - ROTATOR CUFF SYNDROME [None]
  - SINUS TACHYCARDIA [None]
  - UPPER RESPIRATORY TRACT INFECTION [None]
